FAERS Safety Report 5247788-8 (Version None)
Quarter: 2007Q1

REPORT INFORMATION
  Report Type: 
  Country: None (occurrence: None)
  Receive Date: 20070227
  Receipt Date: 20070216
  Transmission Date: 20070707
  Serious: Yes (Other)
  Sender: FDA-Public Use
  Company Number: US-JNJFOC-20070204187

PATIENT
  Sex: Female
  Weight: 105.69 kg

DRUGS (13)
  1. LEVAQUIN [Suspect]
     Indication: CELLULITIS
     Route: 042
  2. LEVAQUIN [Suspect]
     Route: 048
  3. NOVOLIN 50/50 [Concomitant]
     Indication: DIABETES MELLITUS
     Route: 058
  4. METFORMIN HCL [Concomitant]
     Indication: DIABETES MELLITUS
     Route: 048
  5. LISINOPRIL [Concomitant]
     Indication: HYPERTENSION
     Route: 048
  6. AMITRIPTYLINE HCL [Concomitant]
     Indication: NEUROPATHY
     Route: 048
  7. CLONIDINE [Concomitant]
     Indication: HYPERTENSION
     Route: 048
  8. ESTROGENS SOL/INJ [Concomitant]
     Indication: HORMONE REPLACEMENT THERAPY
     Route: 048
  9. GEMFIBROZIL [Concomitant]
     Indication: BLOOD CHOLESTEROL
     Route: 048
  10. ALLOPRINOL [Concomitant]
     Indication: GOUT
     Route: 048
  11. NEURONTIN [Concomitant]
     Indication: NEUROPATHY
     Route: 048
  12. PROTONIX [Concomitant]
     Indication: GASTROOESOPHAGEAL REFLUX DISEASE
     Route: 048
  13. PREDNISONE [Concomitant]
     Route: 048

REACTIONS (2)
  - BLOOD GLUCOSE FLUCTUATION [None]
  - UNRESPONSIVE TO STIMULI [None]
